FAERS Safety Report 8401219-5 (Version None)
Quarter: 2012Q2

REPORT INFORMATION
  Report Type: 
  Country: None (occurrence: None)
  Receive Date: 20120601
  Receipt Date: 20120525
  Transmission Date: 20120825
  Serious: Yes (Hospitalization, Other)
  Sender: FDA-Public Use
  Company Number: PHHY2012JP045613

PATIENT
  Sex: Male

DRUGS (23)
  1. CLOZARIL [Suspect]
     Dosage: 100 MG, DAILY
     Route: 048
     Dates: start: 20110408, end: 20110409
  2. CLOZARIL [Suspect]
     Dosage: 250 MG, DAILY
     Route: 048
     Dates: start: 20110511, end: 20110621
  3. CLOZARIL [Suspect]
     Dosage: 150 MG, DAILY
     Route: 048
     Dates: start: 20110413, end: 20110415
  4. CLOZARIL [Suspect]
     Dosage: 250 MG, DAILY
     Route: 048
     Dates: start: 20110423, end: 20110426
  5. RISPERIDONE [Concomitant]
     Dosage: 2 MG, UNK
     Dates: end: 20110421
  6. BROVARIN [Concomitant]
     Indication: SCHIZOPHRENIA, PARANOID TYPE
     Dosage: 300 MG, UNK
     Route: 048
     Dates: start: 20110411
  7. METFORMIN HCL [Concomitant]
     Dosage: 500 MG, UNK
     Route: 048
     Dates: start: 20110428, end: 20110705
  8. CLOZARIL [Suspect]
     Dosage: 50 MG, DAILY
     Route: 048
     Dates: start: 20110403, end: 20110405
  9. CLOZARIL [Suspect]
     Dosage: 175 MG, DAILY
     Route: 048
     Dates: start: 20110416, end: 20110418
  10. RISPERIDONE [Concomitant]
     Dosage: 6 MG, UNK
  11. RESTAMIN A [Concomitant]
     Indication: SCHIZOPHRENIA, PARANOID TYPE
     Dosage: 50 MG, UNK
     Route: 048
     Dates: start: 20110411
  12. CLOZARIL [Suspect]
     Indication: SCHIZOPHRENIA, PARANOID TYPE
     Dosage: 12.5 MG, DAILY
     Route: 048
     Dates: start: 20110330, end: 20110330
  13. CLOZARIL [Suspect]
     Dosage: 300 MG, DAILY
     Route: 048
     Dates: start: 20110427, end: 20110510
  14. LITHIUM CARBONATE [Concomitant]
     Indication: SCHIZOPHRENIA, PARANOID TYPE
     Dosage: 400 MG, UNK
     Route: 048
     Dates: start: 20110810
  15. CLOZARIL [Suspect]
     Dosage: 25 MG, DAILY
     Route: 048
     Dates: start: 20110331, end: 20110402
  16. CLOZARIL [Suspect]
     Dosage: 75 MG, DAILY
     Route: 048
     Dates: start: 20110406, end: 20110407
  17. CLOZARIL [Suspect]
     Dosage: 125 MG, DAILY
     Route: 048
     Dates: start: 20110410, end: 20110412
  18. CLOZARIL [Suspect]
     Dosage: 200 MG, DAILY
     Route: 048
     Dates: start: 20110419, end: 20110422
  19. CLOZARIL [Suspect]
     Dosage: 225MG, DAILY
     Route: 048
     Dates: start: 20110622, end: 20110712
  20. RISPERIDONE [Concomitant]
     Dosage: 8 MG, UNK
     Dates: start: 20110330
  21. RISPERIDONE [Concomitant]
     Dosage: 4 MG, UNK
  22. JANUVIA [Concomitant]
     Dosage: 25 MG, UNK
     Route: 048
     Dates: start: 20110428, end: 20110511
  23. CLOZARIL [Suspect]
     Dosage: 200 MG, DAILY
     Route: 048
     Dates: start: 20110713

REACTIONS (2)
  - APPENDICITIS [None]
  - LARGE INTESTINE PERFORATION [None]
